FAERS Safety Report 5011384-8 (Version None)
Quarter: 2006Q2

REPORT INFORMATION
  Report Type: 
  Country: None (occurrence: None)
  Receive Date: 20060404
  Receipt Date: 20051206
  Transmission Date: 20061013
  Serious: No
  Sender: FDA-Public Use
  Company Number: USA0507102997

PATIENT
  Age: 33 Year
  Sex: Male

DRUGS (5)
  1. CYMBALTA [Suspect]
     Dosage: 60 MG
     Dates: start: 20050411, end: 20050709
  2. ACETAMINOPHEN AND HYDROCODONE BITARTRATE [Concomitant]
  3. HYDROCODONE BITARTRATE [Concomitant]
  4. LOVENOX [Concomitant]
  5. COUMADIN [Concomitant]

REACTIONS (3)
  - BENIGN PROSTATIC HYPERPLASIA [None]
  - PENIS DISORDER [None]
  - URINARY RETENTION [None]
